FAERS Safety Report 18277120 (Version 1)
Quarter: 2020Q3

REPORT INFORMATION
  Report Type: Spontaneous
  Country: US (occurrence: US)
  Receive Date: 20200916
  Receipt Date: 20200916
  Transmission Date: 20201103
  Serious: Yes (Other)
  Sender: FDA-Public Use
  Company Number: None

PATIENT
  Age: 76 Year
  Sex: Female
  Weight: 55.44 kg

DRUGS (13)
  1. IBRANCE [Suspect]
     Active Substance: PALBOCICLIB
     Indication: BREAST CANCER
     Route: 048
     Dates: start: 20200501
  2. ATACAND [Concomitant]
     Active Substance: CANDESARTAN CILEXETIL
  3. VITAMIN D [Concomitant]
     Active Substance: VITAMIN D NOS
  4. GABAPENTIN. [Concomitant]
     Active Substance: GABAPENTIN
  5. CENTRUM [Concomitant]
     Active Substance: VITAMINS
  6. COMBIVENT [Concomitant]
     Active Substance: ALBUTEROL SULFATE\IPRATROPIUM BROMIDE
  7. NORVASC [Concomitant]
     Active Substance: AMLODIPINE BESYLATE
  8. LUMIGAN [Concomitant]
     Active Substance: BIMATOPROST
  9. LETROZOLE. [Concomitant]
     Active Substance: LETROZOLE
  10. AZOPT [Concomitant]
     Active Substance: BRINZOLAMIDE
  11. OXYCODONE [Concomitant]
     Active Substance: OXYCODONE
  12. FLOVENT HFA [Concomitant]
     Active Substance: FLUTICASONE PROPIONATE
  13. FLOVENT DISKUS [Concomitant]
     Active Substance: FLUTICASONE PROPIONATE

REACTIONS (1)
  - Surgery [None]
